FAERS Safety Report 22148022 (Version 1)
Quarter: 2023Q1

REPORT INFORMATION
  Report Type: Spontaneous
  Country: FR (occurrence: FR)
  Receive Date: 20230328
  Receipt Date: 20230328
  Transmission Date: 20230417
  Serious: Yes (Hospitalization)
  Sender: FDA-Public Use
  Company Number: None

PATIENT
  Age: 64 Year
  Sex: Female
  Weight: 88 kg

DRUGS (3)
  1. ETOPOSIDE [Suspect]
     Active Substance: ETOPOSIDE
     Indication: Small cell lung cancer metastatic
     Dosage: NOT KNOWN
     Route: 042
     Dates: start: 20221125, end: 20230201
  2. TECENTRIQ [Suspect]
     Active Substance: ATEZOLIZUMAB
     Indication: Small cell lung cancer metastatic
     Dosage: 1200MG 1X/CYCLICAL
     Route: 042
     Dates: start: 20221125, end: 20230201
  3. CARBOPLATIN [Suspect]
     Active Substance: CARBOPLATIN
     Indication: Small cell lung cancer metastatic
     Dosage: NOT KNOWN
     Route: 042
     Dates: start: 20221125, end: 20230201

REACTIONS (2)
  - Condition aggravated [Not Recovered/Not Resolved]
  - Acute polyneuropathy [Not Recovered/Not Resolved]

NARRATIVE: CASE EVENT DATE: 20230101
